FAERS Safety Report 8525945-2 (Version None)
Quarter: 2012Q3

REPORT INFORMATION
  Report Type: 
  Country: None (occurrence: None)
  Receive Date: 20120720
  Receipt Date: 20120717
  Transmission Date: 20120928
  Serious: No
  Sender: FDA-Public Use
  Company Number: US-PFIZER INC-2012172636

PATIENT
  Sex: Female
  Weight: 68 kg

DRUGS (5)
  1. LYRICA [Suspect]
     Indication: NEURALGIA
     Dosage: 75 MG, 2X/DAY
     Dates: start: 20110301
  2. HYDROCODONE [Suspect]
     Dosage: UNK, 2X/DAY
  3. XANAX [Concomitant]
     Indication: INSOMNIA
     Dosage: 1 MG, AS NEEDED
  4. VITAMIN TAB [Concomitant]
     Dosage: UNK
  5. LYRICA [Suspect]
     Dosage: 75 MG, AS NEEDED

REACTIONS (2)
  - SLUGGISHNESS [None]
  - SOMNOLENCE [None]
